FAERS Safety Report 21765645 (Version 3)
Quarter: 2023Q1

REPORT INFORMATION
  Report Type: Spontaneous
  Country: US (occurrence: US)
  Receive Date: 20221222
  Receipt Date: 20230301
  Transmission Date: 20230418
  Serious: Yes (Hospitalization)
  Sender: FDA-Public Use
  Company Number: US-SA-SAC20221221000039

PATIENT
  Age: 18 Year
  Sex: Male
  Weight: 54.6 kg

DRUGS (14)
  1. ELOCTATE [Suspect]
     Active Substance: EFMOROCTOCOG ALFA
     Indication: Factor VIII deficiency
     Dosage: 850 IU, PRN
     Route: 042
  2. ELOCTATE [Suspect]
     Active Substance: EFMOROCTOCOG ALFA
     Indication: Factor VIII deficiency
     Dosage: 850 IU, PRN
     Route: 042
  3. ELOCTATE [Suspect]
     Active Substance: EFMOROCTOCOG ALFA
     Indication: Haemorrhage
     Dosage: 2850 IU, PRN (FOR MAJOR BLEEDS)
     Route: 042
     Dates: start: 201902
  4. ELOCTATE [Suspect]
     Active Substance: EFMOROCTOCOG ALFA
     Indication: Haemorrhage
     Dosage: 2850 IU, PRN (FOR MAJOR BLEEDS)
     Route: 042
     Dates: start: 201902
  5. ELOCTATE [Suspect]
     Active Substance: EFMOROCTOCOG ALFA
     Dosage: 1425 IU, PRN (FOR MILD BLEEDS)
     Route: 042
     Dates: start: 201902
  6. ELOCTATE [Suspect]
     Active Substance: EFMOROCTOCOG ALFA
     Dosage: 1425 IU, PRN (FOR MILD BLEEDS)
     Route: 042
     Dates: start: 201902
  7. ELOCTATE [Suspect]
     Active Substance: EFMOROCTOCOG ALFA
     Dosage: 2000 IU, PRN
     Route: 042
     Dates: start: 202212
  8. ELOCTATE [Suspect]
     Active Substance: EFMOROCTOCOG ALFA
     Dosage: 2000 IU, PRN
     Route: 042
     Dates: start: 202212
  9. ELOCTATE [Suspect]
     Active Substance: EFMOROCTOCOG ALFA
     Dosage: 1425 IU, PRN
     Route: 042
     Dates: start: 20221212
  10. ELOCTATE [Suspect]
     Active Substance: EFMOROCTOCOG ALFA
     Dosage: 1425 IU, PRN
     Route: 042
     Dates: start: 20221212
  11. ELOCTATE [Suspect]
     Active Substance: EFMOROCTOCOG ALFA
     Dosage: 2850 IU, PRN
     Route: 042
     Dates: start: 20221212
  12. ELOCTATE [Suspect]
     Active Substance: EFMOROCTOCOG ALFA
     Dosage: 2850 IU, PRN
     Route: 042
     Dates: start: 20221212
  13. TYLENOL [Concomitant]
     Active Substance: ACETAMINOPHEN
     Dosage: 2 DF, Q4H PRN
     Route: 048
     Dates: start: 20170825
  14. HEMLIBRA [Concomitant]
     Active Substance: EMICIZUMAB-KXWH
     Dosage: 165 MG, (1.1ML)  QOW (USE 0.7 ML FROM 105MG VIAL AND 0.4 ML FROM 60 MG VIAL)
     Route: 058
     Dates: start: 20221114

REACTIONS (10)
  - Blood urine present [Unknown]
  - Epistaxis [Recovered/Resolved]
  - Blood chloride increased [Unknown]
  - Blood creatinine decreased [Unknown]
  - Blood calcium decreased [Unknown]
  - Protein total decreased [Unknown]
  - Alanine aminotransferase decreased [Unknown]
  - Aspartate aminotransferase decreased [Unknown]
  - Pain in extremity [Unknown]
  - Dizziness [Unknown]

NARRATIVE: CASE EVENT DATE: 20221201
